FAERS Safety Report 13686623 (Version 6)
Quarter: 2017Q4

REPORT INFORMATION
  Report Type: Report from Study
  Country: None (occurrence: CA)
  Receive Date: 20170623
  Receipt Date: 20171003
  Transmission Date: 20180320
  Serious: Yes (Life-Threatening, Hospitalization, Disabling, Other)
  Sender: FDA-Public Use
  Company Number: CA-ABBVIE-17P-028-2014943-00

PATIENT
  Age: 64 Year
  Sex: Male
  Weight: 81 kg

DRUGS (2)
  1. HOLKIRA PAK [Suspect]
     Active Substance: DASABUVIR\OMBITASVIR\PARITAPREVIR\RITONAVIR
     Indication: HEPATITIS C
     Dosage: UNIT DOSE: PARITAPREVIR/R OMBITASVIR:150/100/25MG, DASABUVIR: 250 MG
     Route: 048
     Dates: start: 20170222, end: 201705
  2. MODERIBA [Suspect]
     Active Substance: RIBAVIRIN
     Indication: HEPATITIS C
     Route: 048
     Dates: start: 20170222, end: 201705

REACTIONS (8)
  - Abscess intestinal [Unknown]
  - Abdominal abscess [Unknown]
  - Gastrointestinal necrosis [Unknown]
  - Abscess limb [Not Recovered/Not Resolved]
  - Spinal osteoarthritis [Unknown]
  - Ascites [Unknown]
  - Duodenal ulcer perforation [Recovering/Resolving]
  - Intestinal dilatation [Unknown]

NARRATIVE: CASE EVENT DATE: 2017
